FAERS Safety Report 8604663-6 (Version None)
Quarter: 2012Q3

REPORT INFORMATION
  Report Type: 
  Country: None (occurrence: None)
  Receive Date: 20120808
  Receipt Date: 20120808
  Transmission Date: 20120928
  Serious: Yes (Life-Threatening)
  Sender: FDA-Public Use
  Company Number: None

PATIENT
  Weight: 64.8644 kg

DRUGS (1)
  1. VYVANSE 60MG SHIRE US [Suspect]
     Indication: ATTENTION DEFICIT/HYPERACTIVITY DISORDER
     Dosage: 60 MG
     Dates: start: 20081001, end: 20120730

REACTIONS (3)
  - CARDIAC DISORDER [None]
  - DYSPNOEA [None]
  - ATRIAL FIBRILLATION [None]
